FAERS Safety Report 9597009 (Version 1)
Quarter: 2013Q4

REPORT INFORMATION
  Report Type: Spontaneous
  Country: GB (occurrence: GB)
  Receive Date: 20131004
  Receipt Date: 20131004
  Transmission Date: 20140711
  Serious: Yes (Other)
  Sender: FDA-Public Use
  Company Number: PHHY2013GB109380

PATIENT
  Age: 41 Year
  Sex: Female

DRUGS (4)
  1. ETHAMBUTOL [Suspect]
     Indication: LYMPH NODE TUBERCULOSIS
  2. ISONIAZID [Suspect]
     Indication: LYMPH NODE TUBERCULOSIS
  3. RIFAMPICIN [Suspect]
     Indication: LYMPH NODE TUBERCULOSIS
  4. PYRAZINAMIDE [Suspect]
     Indication: LYMPH NODE TUBERCULOSIS

REACTIONS (11)
  - Drug reaction with eosinophilia and systemic symptoms [Recovered/Resolved]
  - Pyrexia [Recovered/Resolved]
  - Rash maculo-papular [Recovered/Resolved]
  - Lethargy [Recovered/Resolved]
  - Myalgia [Recovered/Resolved]
  - Liver function test abnormal [Recovered/Resolved]
  - White blood cell count increased [Recovered/Resolved]
  - Lymphocytosis [Recovered/Resolved]
  - Monocytosis [Recovered/Resolved]
  - Eosinophilia [Recovered/Resolved]
  - Human herpesvirus 7 infection [Recovered/Resolved]
